FAERS Safety Report 4796553-4 (Version None)
Quarter: 2005Q4

REPORT INFORMATION
  Report Type: 
  Country: None (occurrence: None)
  Receive Date: 20051007
  Receipt Date: 20050923
  Transmission Date: 20060501
  Serious: Yes (Other)
  Sender: FDA-Public Use
  Company Number: 12485

PATIENT
  Age: 50 Year
  Sex: Male
  Weight: 124 kg

DRUGS (10)
  1. ACYCLOVIR [Suspect]
     Indication: HERPES ZOSTER
     Dosage: 800 MG OTH PO
     Route: 048
     Dates: start: 20050207, end: 20050211
  2. DOSULEPIN [Concomitant]
  3. VERAPAMIL [Concomitant]
  4. ATORVASTATIN [Concomitant]
  5. METFORMIN [Concomitant]
  6. BENDROFLUAZIDE [Concomitant]
  7. VALSARTAN [Concomitant]
  8. ETODOLAC [Concomitant]
  9. DOXAZOSIN [Concomitant]
  10. HYDROXYCARBAMIDE [Concomitant]

REACTIONS (1)
  - RASH MACULO-PAPULAR [None]
